FAERS Safety Report 8309953-2 (Version None)
Quarter: 2012Q2

REPORT INFORMATION
  Report Type: 
  Country: None (occurrence: None)
  Receive Date: 20120425
  Receipt Date: 20120419
  Transmission Date: 20120825
  Serious: Yes (Other)
  Sender: FDA-Public Use
  Company Number: BR-PFIZER INC-2012000855

PATIENT
  Age: 71 Year
  Sex: Male
  Weight: 71 kg

DRUGS (8)
  1. ALPRAZOLAM [Concomitant]
     Dosage: 0.5 MG, 1X/DAY (AT NIGHT)
  2. ACTOS [Concomitant]
     Dosage: UNK, IN THE MORNING
  3. SUTENT [Suspect]
     Indication: RENAL CANCER
  4. TAMSULOSIN HCL [Concomitant]
     Dosage: 0.4 MG, 3X/WEEK
  5. SUTENT [Suspect]
     Indication: RENAL CANCER METASTATIC
     Dosage: 50 MG, CYCLE 4 PER 2
     Route: 048
     Dates: start: 20111221, end: 20120416
  6. SUTENT [Suspect]
     Indication: RENAL CELL CARCINOMA
  7. CRESTOR [Concomitant]
     Dosage: 10 MG, 3 TIMES WEEKLY
  8. DIOVAN [Concomitant]
     Dosage: 40 MG, 1X/DAY (IN THE MORNING)

REACTIONS (24)
  - HAEMATOCHEZIA [None]
  - DRY SKIN [None]
  - WOUND [None]
  - TONGUE DISORDER [None]
  - BLOOD CALCIUM DECREASED [None]
  - PAIN [None]
  - PAIN IN EXTREMITY [None]
  - DIARRHOEA [None]
  - CONSTIPATION [None]
  - MUSCULAR WEAKNESS [None]
  - DECREASED APPETITE [None]
  - ANAL INJURY [None]
  - SKIN EXFOLIATION [None]
  - ERYTHEMA [None]
  - PLATELET COUNT DECREASED [None]
  - FALL [None]
  - MUSCULOSKELETAL CHEST PAIN [None]
  - SKIN FISSURES [None]
  - NAUSEA [None]
  - BLISTER [None]
  - NAIL INFECTION [None]
  - LOWER EXTREMITY MASS [None]
  - PAINFUL DEFAECATION [None]
  - HYPERKERATOSIS [None]
